FAERS Safety Report 9783558 (Version 1)
Quarter: 2013Q4

REPORT INFORMATION
  Report Type: Spontaneous
  Country: US (occurrence: US)
  Receive Date: 20131226
  Receipt Date: 20131226
  Transmission Date: 20140711
  Serious: No
  Sender: FDA-Public Use
  Company Number: US-PFIZER INC-2013368181

PATIENT
  Age: 51 Year
  Sex: Female
  Weight: 53.5 kg

DRUGS (2)
  1. GABAPENTIN [Suspect]
     Indication: NERVE BLOCK
     Dosage: UNK, 2X/DAY
     Route: 048
  2. VISTARIL [Concomitant]
     Indication: ANXIETY

REACTIONS (4)
  - Off label use [Unknown]
  - Drug ineffective for unapproved indication [Unknown]
  - Weight increased [Unknown]
  - Infection [Unknown]
